FAERS Safety Report 11393903 (Version 1)
Quarter: 2015Q3

REPORT INFORMATION
  Report Type: Spontaneous
  Country: GB (occurrence: GB)
  Receive Date: 20150819
  Receipt Date: 20150819
  Transmission Date: 20151125
  Serious: Yes (Disabling, Other)
  Sender: FDA-Public Use
  Company Number: GB-ACCORD-033006

PATIENT
  Age: 49 Year
  Sex: Male
  Weight: 77.7 kg

DRUGS (5)
  1. ESCITALOPRAM/ESCITALOPRAM OXALATE [Concomitant]
  2. BUSPIRONE/BUSPIRONE HYDROCHLORIDE [Concomitant]
  3. CHLORDIAZEPOXIDE/CHLORDIAZEPOXIDE HYDROCHLORIDE [Concomitant]
     Indication: ALCOHOL DETOXIFICATION
     Dosage: COMPLETED A WEEK BEFORE STARTING SERTRALINE.
     Dates: end: 20150715
  4. BUPRENORPHINE/BUPRENORPHINE HYDROCHLORIDE [Concomitant]
     Dosage: STILL CURRENTLY TAKING
  5. SERTRALINE [Suspect]
     Active Substance: SERTRALINE HYDROCHLORIDE
     Indication: DEPRESSION
     Dosage: ALSO RECEIVED 100 MG ONCE DAILY FROM 27-JUL-2015
     Route: 048
     Dates: start: 20150722, end: 20150726

REACTIONS (1)
  - Post-traumatic stress disorder [Not Recovered/Not Resolved]

NARRATIVE: CASE EVENT DATE: 20150723
